FAERS Safety Report 17665897 (Version 2)
Quarter: 2020Q2

REPORT INFORMATION
  Report Type: Report from Study
  Country: None (occurrence: US)
  Receive Date: 20200414
  Receipt Date: 20200421
  Transmission Date: 20200713
  Serious: Yes (Hospitalization, Other)
  Sender: FDA-Public Use
  Company Number: US-ABBVIE-20K-163-3362610-00

PATIENT
  Age: 34 Year
  Sex: Female

DRUGS (5)
  1. HUMIRA [Suspect]
     Active Substance: ADALIMUMAB
     Indication: CROHN^S DISEASE
     Dosage: CITRATE FREE
     Route: 058
     Dates: start: 2013, end: 2016
  2. THIOGUANINE [Concomitant]
     Active Substance: THIOGUANINE
     Indication: CROHN^S DISEASE
  3. HUMIRA [Suspect]
     Active Substance: ADALIMUMAB
     Dosage: CITRATE FREE
     Route: 058
     Dates: start: 2016
  4. IRON TABLET SUPPLIMENT [Concomitant]
     Indication: CROHN^S DISEASE
  5. CALCIUM TABLET SUPPLIMENT [Concomitant]
     Indication: CROHN^S DISEASE

REACTIONS (3)
  - Maternal exposure during pregnancy [Unknown]
  - Crohn^s disease [Recovering/Resolving]
  - Abortion spontaneous [Unknown]

NARRATIVE: CASE EVENT DATE: 2016
